FAERS Safety Report 5244084-X (Version None)
Quarter: 2007Q1

REPORT INFORMATION
  Report Type: 
  Country: None (occurrence: None)
  Receive Date: 20070222
  Receipt Date: 20070209
  Transmission Date: 20070707
  Serious: Yes (Life-Threatening)
  Sender: FDA-Public Use
  Company Number: FR-AVENTIS-200310521FR

PATIENT
  Age: 54 Year
  Sex: Female

DRUGS (8)
  1. KETEK [Suspect]
     Indication: TRACHEITIS
     Route: 048
     Dates: start: 20030127, end: 20030127
  2. CORTANCYL [Concomitant]
     Route: 048
     Dates: end: 20030126
  3. SOLUPRED                           /00016201/ [Concomitant]
     Route: 048
     Dates: start: 20030127, end: 20030201
  4. MESTINON [Concomitant]
     Route: 048
  5. PAROXETINE HCL [Concomitant]
     Route: 048
  6. NEO-MERCAZOLE TAB [Concomitant]
  7. POTASSIUM ACETATE [Concomitant]
  8. SARGENOR [Concomitant]

REACTIONS (5)
  - BRADYCARDIA [None]
  - ELECTROCARDIOGRAM QT INTERVAL [None]
  - MALAISE [None]
  - MUSCULAR WEAKNESS [None]
  - RESPIRATORY ARREST [None]
